FAERS Safety Report 8172696-2 (Version None)
Quarter: 2012Q1

REPORT INFORMATION
  Report Type: 
  Country: None (occurrence: None)
  Receive Date: 20120229
  Receipt Date: 20120223
  Transmission Date: 20120608
  Serious: Yes (Hospitalization)
  Sender: FDA-Public Use
  Company Number: US-AMGEN-USASP2012008644

PATIENT
  Age: 63 Year
  Sex: Male
  Weight: 97.506 kg

DRUGS (4)
  1. CYCLOPHOSPHAMIDE [Concomitant]
     Dosage: UNK
     Dates: start: 20111130
  2. ENBREL [Suspect]
     Indication: PRODUCT USED FOR UNKNOWN INDICATION
     Dosage: 50 MG, QWK
     Route: 058
     Dates: start: 20100104, end: 20100901
  3. ENBREL [Suspect]
     Indication: PSORIATIC ARTHROPATHY
  4. RITUXIMAB [Concomitant]
     Indication: DIFFUSE LARGE B-CELL LYMPHOMA
     Dosage: UNK UNK,
     Dates: start: 20111130

REACTIONS (3)
  - DIFFUSE LARGE B-CELL LYMPHOMA [None]
  - DRUG INEFFECTIVE [None]
  - PULMONARY EMBOLISM [None]
